FAERS Safety Report 4910034-6 (Version None)
Quarter: 2006Q1

REPORT INFORMATION
  Report Type: 
  Country: None (occurrence: None)
  Receive Date: 20060208
  Receipt Date: 20060124
  Transmission Date: 20060701
  Serious: Yes (Hospitalization)
  Sender: FDA-Public Use
  Company Number: 200510420BFR

PATIENT
  Age: 53 Year
  Sex: Male

DRUGS (7)
  1. NIMOTOP [Suspect]
     Indication: PROPHYLAXIS
     Dosage: 30 MG, Q4HR, ORAL
     Dates: start: 20050503, end: 20050512
  2. NIMOTOP [Suspect]
     Indication: VASOSPASM
     Dosage: 30 MG, Q4HR, ORAL
     Dates: start: 20050503, end: 20050512
  3. NIMOTOP [Suspect]
     Indication: PROPHYLAXIS
     Dosage: 30 MG, Q4HR, ORAL
     Dates: start: 20050401
  4. NIMOTOP [Suspect]
     Indication: VASOSPASM
     Dosage: 30 MG, Q4HR, ORAL
     Dates: start: 20050401
  5. CLAFORIN (CEFOTAXIME SODIUM) [Suspect]
     Indication: MENINGITIS BACTERIAL
     Dosage: 4 G, TID, INTRAVENOUS
     Route: 042
     Dates: start: 20050418, end: 20050515
  6. XATRAL (ALFUZOSIN) [Suspect]
     Indication: URINARY TRACT OBSTRUCTION
     Dosage: 5 MG, QD, ORAL
     Route: 048
     Dates: start: 20050421, end: 20050518
  7. FRAGMIN [Concomitant]

REACTIONS (3)
  - AGRANULOCYTOSIS [None]
  - LABORATORY TEST ABNORMAL [None]
  - RASH [None]
